FAERS Safety Report 5042499-6 (Version None)
Quarter: 2006Q3

REPORT INFORMATION
  Report Type: 
  Country: None (occurrence: None)
  Receive Date: 20060705
  Receipt Date: 20060524
  Transmission Date: 20061208
  Serious: Yes (Death)
  Sender: FDA-Public Use
  Company Number: US-KINGPHARMUSA00001-K200600676

PATIENT
  Age: 35 Year
  Sex: Female

DRUGS (1)
  1. BICILLIN L-A [Suspect]
     Indication: RHEUMATIC HEART DISEASE
     Dosage: 12 LAC, I.U.
     Route: 030

REACTIONS (5)
  - ANAPHYLACTIC SHOCK [None]
  - DISSEMINATED INTRAVASCULAR COAGULATION [None]
  - DRUG EXPOSURE DURING PREGNANCY [None]
  - FALL [None]
  - SYNCOPE [None]
